FAERS Safety Report 6816379-7 (Version None)
Quarter: 2010Q3

REPORT INFORMATION
  Report Type: 
  Country: None (occurrence: None)
  Receive Date: 20100705
  Receipt Date: 20100625
  Transmission Date: 20110219
  Serious: Yes (Hospitalization)
  Sender: FDA-Public Use
  Company Number: PHHY2010IT42306

PATIENT
  Sex: Female

DRUGS (1)
  1. CYCLOSPORINE [Suspect]

REACTIONS (2)
  - LIVER INJURY [None]
  - RASH [None]
